FAERS Safety Report 9315618 (Version 1)
Quarter: 2013Q2

REPORT INFORMATION
  Report Type: Spontaneous
  Country: MX (occurrence: MX)
  Receive Date: 20130529
  Receipt Date: 20130529
  Transmission Date: 20140414
  Serious: Yes (Hospitalization, Other)
  Sender: FDA-Public Use
  Company Number: MX-MERCK-1305MEX015623

PATIENT
  Age: 53 Year
  Sex: Male

DRUGS (1)
  1. JANUMET [Suspect]
     Dosage: 50/500 MG, 30 TABLETS ONCE
     Route: 048

REACTIONS (2)
  - Suicide attempt [Recovered/Resolved]
  - Intentional overdose [Recovered/Resolved]
